FAERS Safety Report 6855851-0 (Version None)
Quarter: 2010Q3

REPORT INFORMATION
  Report Type: 
  Country: None (occurrence: None)
  Receive Date: 20100719
  Receipt Date: 20100715
  Transmission Date: 20110219
  Serious: Yes (Life-Threatening)
  Sender: FDA-Public Use
  Company Number: FR-ASTRAZENECA-2010SE32966

PATIENT
  Age: 17605 Day
  Sex: Male

DRUGS (15)
  1. DIPRIVAN [Suspect]
     Route: 042
     Dates: start: 20100617, end: 20100617
  2. NAROPIN [Suspect]
     Route: 042
     Dates: start: 20100617, end: 20100617
  3. ROCURONIUM BROMIDE [Suspect]
     Route: 042
     Dates: start: 20100617, end: 20100617
  4. SUFENTANIL [Suspect]
     Route: 042
     Dates: start: 20100617, end: 20100617
  5. AERIUS [Concomitant]
     Route: 065
  6. OXYCONTIN [Concomitant]
     Route: 065
  7. CYMBALTA [Concomitant]
     Route: 065
  8. RIVOTRIL [Concomitant]
     Route: 065
  9. INNOVAIR [Concomitant]
     Route: 065
  10. GAVISCON [Concomitant]
     Route: 065
  11. NEXIUM [Concomitant]
     Route: 065
  12. EFFERALGAN [Concomitant]
     Route: 065
  13. ALTEIS [Concomitant]
     Route: 065
  14. LYRICA [Concomitant]
     Route: 065
  15. ATARAX [Concomitant]
     Route: 065

REACTIONS (1)
  - ANAPHYLACTIC SHOCK [None]
